FAERS Safety Report 16235546 (Version 2)
Quarter: 2019Q2

REPORT INFORMATION
  Report Type: Report from Study
  Country: GB (occurrence: GB)
  Receive Date: 20190424
  Receipt Date: 20190507
  Transmission Date: 20190711
  Serious: Yes (Hospitalization)
  Sender: FDA-Public Use
  Company Number: GB-TAKEDA-2019TUS025210

PATIENT

DRUGS (8)
  1. PONATINIB [Suspect]
     Active Substance: PONATINIB
     Indication: CHRONIC MYELOID LEUKAEMIA TRANSFORMATION
     Dosage: 15 MILLIGRAM, QD
     Route: 048
     Dates: start: 20180427, end: 20190314
  2. PENTAMIDINE                        /00187102/ [Concomitant]
     Active Substance: PENTAMIDINE ISETHIONATE
     Indication: PROPHYLAXIS
     Dosage: 300 MILLIGRAM, MONTHLY
     Route: 065
     Dates: start: 20181206
  3. MAGNESIUM [Concomitant]
     Active Substance: MAGNESIUM
     Indication: PROPHYLAXIS
     Dosage: UNK, BID
     Route: 065
     Dates: start: 20181206
  4. ACYCLOVIR                          /00587301/ [Concomitant]
     Active Substance: ACYCLOVIR
     Indication: PROPHYLAXIS
     Dosage: 400 MILLIGRAM, BID
     Route: 065
     Dates: start: 20181206
  5. PENICILLIN                         /00000901/ [Concomitant]
     Active Substance: PENICILLIN G
     Indication: ANTIBIOTIC PROPHYLAXIS
     Dosage: 250 MILLIGRAM, BID
     Route: 065
     Dates: start: 20181206
  6. OXYBUTIN [Concomitant]
     Active Substance: OXYBUTYNIN
     Indication: PROPHYLAXIS
     Dosage: 25 MILLIGRAM, TID
     Route: 065
     Dates: start: 20181206
  7. PARACETAMOL [Concomitant]
     Active Substance: ACETAMINOPHEN
     Indication: PYREXIA
     Dosage: UNK
     Route: 065
     Dates: start: 20181206
  8. CYCLOSPORIN [Concomitant]
     Active Substance: CYCLOSPORINE
     Indication: PROPHYLAXIS
     Dosage: 125 MILLIGRAM, QD
     Route: 065
     Dates: start: 20181206

REACTIONS (2)
  - Rash pustular [Recovered/Resolved]
  - Headache [Unknown]

NARRATIVE: CASE EVENT DATE: 20190414
